FAERS Safety Report 25411644 (Version 1)
Quarter: 2025Q2

REPORT INFORMATION
  Report Type: Spontaneous
  Country: CN (occurrence: CN)
  Receive Date: 20250609
  Receipt Date: 20250609
  Transmission Date: 20250717
  Serious: Yes (Life-Threatening)
  Sender: DAIICHI
  Company Number: CN-DSJP-DS-2025-146433-CN

PATIENT
  Age: 56 Year
  Sex: Female
  Weight: 59 kg

DRUGS (3)
  1. ENHERTU [Suspect]
     Active Substance: FAM-TRASTUZUMAB DERUXTECAN-NXKI
     Indication: Chemotherapy
     Dosage: 300 MG, QD ( 300MG, IV DRIP FOR 90 MINUTES, Q21D.)
     Route: 041
     Dates: start: 20250605, end: 20250605
  2. ENHERTU [Suspect]
     Active Substance: FAM-TRASTUZUMAB DERUXTECAN-NXKI
     Indication: Neoplasm
  3. DEXTROSE [Concomitant]
     Active Substance: DEXTROSE MONOHYDRATE
     Indication: Product used for unknown indication
     Route: 065

REACTIONS (1)
  - Oxygen saturation decreased [Recovered/Resolved]

NARRATIVE: CASE EVENT DATE: 20250605
